FAERS Safety Report 5460313-1 (Version None)
Quarter: 2007Q3

REPORT INFORMATION
  Report Type: 
  Country: None (occurrence: None)
  Receive Date: 20070919
  Receipt Date: 20070615
  Transmission Date: 20080115
  Serious: No
  Sender: FDA-Public Use
  Company Number: US-ASTRAZENECA-2007UW14443

PATIENT
  Sex: Female

DRUGS (3)
  1. SEROQUEL [Suspect]
     Indication: DEPRESSION
     Dosage: 100-300 MG DAILY-BAD DAYS, 25-50MG DAILY-GOOD DAYS
     Route: 048
     Dates: start: 20060301
  2. SEROQUEL [Suspect]
     Indication: ANXIETY
     Dosage: 100-300 MG DAILY-BAD DAYS, 25-50MG DAILY-GOOD DAYS
     Route: 048
     Dates: start: 20060301
  3. LEXAPRO [Concomitant]

REACTIONS (2)
  - HEADACHE [None]
  - VISION BLURRED [None]
